FAERS Safety Report 8365889-2 (Version None)
Quarter: 2012Q2

REPORT INFORMATION
  Report Type: 
  Country: None (occurrence: None)
  Receive Date: 20120515
  Receipt Date: 20120515
  Transmission Date: 20120825
  Serious: Yes (Hospitalization)
  Sender: FDA-Public Use
  Company Number: None

PATIENT
  Sex: Male

DRUGS (1)
  1. ZELBORAF [Suspect]
     Dosage: 720MG BID PO
     Route: 048
     Dates: start: 20120120, end: 20120219

REACTIONS (1)
  - RETINAL DETACHMENT [None]
